FAERS Safety Report 14610153 (Version 2)
Quarter: 2018Q2

REPORT INFORMATION
  Report Type: Spontaneous
  Country: US (occurrence: US)
  Receive Date: 20180307
  Receipt Date: 20180612
  Transmission Date: 20180711
  Serious: Yes (Hospitalization, Disabling)
  Sender: FDA-Public Use
  Company Number: US-009507513-1803USA001723

PATIENT
  Age: 45 Year
  Sex: Male

DRUGS (1)
  1. KEYTRUDA [Suspect]
     Active Substance: PEMBROLIZUMAB
     Indication: PHAEOCHROMOCYTOMA
     Dosage: UNK

REACTIONS (3)
  - Urine abnormality [Recovering/Resolving]
  - Chronic sinusitis [Recovering/Resolving]
  - Product use in unapproved indication [Unknown]
